FAERS Safety Report 24529713 (Version 2)
Quarter: 2024Q4

REPORT INFORMATION
  Report Type: Spontaneous
  Country: US (occurrence: US)
  Receive Date: 20241021
  Receipt Date: 20241107
  Transmission Date: 20250114
  Serious: Yes (Death, Other)
  Sender: BAXTER
  Company Number: US-BAXTER-2024BAX026025

PATIENT
  Age: 78 Year
  Sex: Female
  Weight: 65 kg

DRUGS (19)
  1. CYCLOPHOSPHAMIDE [Suspect]
     Active Substance: CYCLOPHOSPHAMIDE
     Dosage: 150 MG/M2 CYCLIC (CYCLES 1, 3, 5, 7: 150 MG/M2, SCHEDULE: EVERY 12 HRS X 6 DOSES, DAYS 1-3)
     Route: 042
  2. MESNA [Suspect]
     Active Substance: MESNA
     Indication: B-cell type acute leukaemia
     Dosage: 300 MG/M2 CYCLIC (CYCLES 1, 3, 5, 7: 300 MG/M2, SCHEDULE: DAYS 1-3)
     Route: 065
  3. MESNA [Suspect]
     Active Substance: MESNA
     Indication: Acute lymphocytic leukaemia
  4. INOTUZUMAB OZOGAMICIN [Suspect]
     Active Substance: INOTUZUMAB OZOGAMICIN
     Indication: B-cell type acute leukaemia
     Dosage: CYCLIC (CYCLE 1: SCHEDULE: 0.6 MG/M2 D2, 0.3 MG/M2 D8 (TOTAL 0.9 MG/M2))
     Route: 042
     Dates: start: 20240126, end: 20240202
  5. INOTUZUMAB OZOGAMICIN [Suspect]
     Active Substance: INOTUZUMAB OZOGAMICIN
     Indication: Acute lymphocytic leukaemia
     Dosage: CYCLES 2-4: SCHEDULE: 0.3 MG/M2 D2, D8 (TOTAL 0.6 MG/M2), RECEIVED ONLY ONE DOSE THIS CYCLE
     Route: 042
     Dates: start: 20240227, end: 20240227
  6. CYTARABINE [Suspect]
     Active Substance: CYTARABINE
     Indication: B-cell type acute leukaemia
     Dosage: 100 MG CYCLIC (CYCLES 1-4: 100 MG, SCHEDULE: DAY 2, 8)
     Route: 037
     Dates: start: 20240217, end: 20240217
  7. CYTARABINE [Suspect]
     Active Substance: CYTARABINE
     Indication: Acute lymphocytic leukaemia
     Dosage: 500 MG/M2 CYCLIC (CYCLES 2, 4, 6, 8: 0.5 G/M2/DOSE, SCHEDULE: EVERY 12 HRS X 4 DOSES, DAYS 2, 3)
     Route: 042
     Dates: start: 20240218, end: 20240218
  8. CYTARABINE [Suspect]
     Active Substance: CYTARABINE
     Dosage: CYCLES 2: 0.5 G/M2/DOSE, SCHEDULE: EVERY 12 HRS X 4 DOSES, DAYS 2, 3
     Route: 042
     Dates: start: 20240219, end: 20240219
  9. CYTARABINE [Suspect]
     Active Substance: CYTARABINE
     Dosage: CYCLES 2: 0.5 G/M2/DOSE, SCHEDULE: EVERY 12 HRS X 4 DOSES, DAYS 2, 3
     Route: 042
     Dates: start: 20240219, end: 20240219
  10. CYTARABINE [Suspect]
     Active Substance: CYTARABINE
     Dosage: CYCLES 2: 0.5 G/M2/DOSE, SCHEDULE: EVERY 12 HRS X 4 DOSES, DAYS 2, 3
     Route: 042
     Dates: start: 20240220, end: 20240220
  11. METHOTREXATE SODIUM [Suspect]
     Active Substance: METHOTREXATE SODIUM
     Indication: B-cell type acute leukaemia
     Dosage: 12 MG CYCLIC (CYCLES 1-4: 12 MG, SCHEDULE: DAY 2, 8)
     Route: 037
     Dates: start: 20240126, end: 20240202
  12. METHOTREXATE SODIUM [Suspect]
     Active Substance: METHOTREXATE SODIUM
     Indication: Acute lymphocytic leukaemia
     Dosage: 250 MG/M2 CYCLIC (CYCLES 2, 4, 6, 8: 250 MG/M2, SCHEDULE: DAY 1)
     Route: 042
     Dates: start: 20240217, end: 20240217
  13. METHYLPREDNISOLONE SODIUM SUCCINATE [Suspect]
     Active Substance: METHYLPREDNISOLONE SODIUM SUCCINATE
     Indication: B-cell type acute leukaemia
     Dosage: 50 MG CYCLIC (CYCLES 2, 4, 6, 8: 50 MG, SCHEDULE: EVERY 12 HRS X 6 DOSES, DAYS 1-3)
     Route: 042
  14. METHYLPREDNISOLONE SODIUM SUCCINATE [Suspect]
     Active Substance: METHYLPREDNISOLONE SODIUM SUCCINATE
     Indication: Acute lymphocytic leukaemia
  15. RITUXIMAB [Suspect]
     Active Substance: RITUXIMAB
     Indication: B-cell type acute leukaemia
     Dosage: 375 MG/M2 CYCLIC (CYCLES 1-4: 375 MG/M2, SCHEDULE: DAY 2, 8
     Route: 042
  16. RITUXIMAB [Suspect]
     Active Substance: RITUXIMAB
     Indication: Acute lymphocytic leukaemia
  17. VINCRISTINE SULFATE [Suspect]
     Active Substance: VINCRISTINE SULFATE
     Indication: B-cell type acute leukaemia
     Dosage: 2 MG CYCLIC (CYCLES 1, 3, 5, 7: 2 MG, SCHEDULE: DAY 1, 8)
     Route: 042
  18. VINCRISTINE SULFATE [Suspect]
     Active Substance: VINCRISTINE SULFATE
     Indication: Acute lymphocytic leukaemia
  19. DEXAMETHASONE [Suspect]
     Active Substance: DEXAMETHASONE
     Dosage: 20 MG CYCLIC (CYCLES 1, 3, 5, 7: 20 MG, IV OR PO, SCHEDULE: DAYS 1-4, DAYS 11-14)
     Route: 050

REACTIONS (2)
  - Second primary malignancy [Fatal]
  - Acute myeloid leukaemia [Fatal]

NARRATIVE: CASE EVENT DATE: 20240524
